FAERS Safety Report 5247813-4 (Version None)
Quarter: 2007Q1

REPORT INFORMATION
  Report Type: 
  Country: None (occurrence: None)
  Receive Date: 20070227
  Receipt Date: 20070227
  Transmission Date: 20070707
  Serious: Yes (Hospitalization)
  Sender: FDA-Public Use
  Company Number: None

PATIENT
  Age: 58 Year
  Sex: Male

DRUGS (1)
  1. AZATHIOPRINE [Suspect]
     Dates: start: 20070129, end: 20070205

REACTIONS (7)
  - CHILLS [None]
  - HYPERHIDROSIS [None]
  - HYPOTENSION [None]
  - NAUSEA [None]
  - SEPSIS SYNDROME [None]
  - TREMOR [None]
  - VOMITING [None]
